FAERS Safety Report 23805681 (Version 1)
Quarter: 2024Q2

REPORT INFORMATION
  Report Type: Other
  Country: MX (occurrence: None)
  Receive Date: 20240502
  Receipt Date: 20240502
  Transmission Date: 20240716
  Serious: Yes (Death)
  Sender: FDA-Public Use
  Company Number: MX-ROCHE-3556033

PATIENT
  Sex: Male

DRUGS (2)
  1. ALECENSA [Suspect]
     Active Substance: ALECTINIB HYDROCHLORIDE
     Indication: Non-small cell lung cancer
     Dosage: THE DOSE HE TOOK WAS EVERY 12 HOURS, 4 PILLS AT NIGHT AND 4 PILLS IN THE MORNING.
     Route: 048
     Dates: start: 20230504, end: 2024
  2. ACETAMINOPHEN\TRAMADOL [Concomitant]
     Active Substance: ACETAMINOPHEN\TRAMADOL
     Indication: Pain

REACTIONS (2)
  - Metastases to liver [Fatal]
  - Drug ineffective [Fatal]
